FAERS Safety Report 18533162 (Version 1)
Quarter: 2020Q4

REPORT INFORMATION
  Report Type: Spontaneous
  Country: GB (occurrence: GB)
  Receive Date: 20201123
  Receipt Date: 20201123
  Transmission Date: 20210114
  Serious: Yes (Disabling)
  Sender: FDA-Public Use
  Company Number: GB-TORRENT-00024419

PATIENT
  Age: 31 Year
  Sex: Female
  Weight: 83 kg

DRUGS (3)
  1. VENLAFAXINE [Suspect]
     Active Substance: VENLAFAXINE HYDROCHLORIDE
     Indication: PRODUCT USED FOR UNKNOWN INDICATION
     Route: 048
     Dates: start: 20201012, end: 20201014
  2. DIAZEPAM. [Concomitant]
     Active Substance: DIAZEPAM
     Indication: ANXIETY
     Dosage: THREE TIMES DAILY AS NECESSARY FOR SHORT-TERM
     Dates: start: 20200918, end: 20200919
  3. COCODAMOL [Concomitant]
     Active Substance: ACETAMINOPHEN\CODEINE PHOSPHATE
     Indication: PRODUCT USED FOR UNKNOWN INDICATION
     Dosage: TAKE ONE OR TWO UP TO FOUR TIMES DAILY
     Dates: start: 20200803, end: 20200831

REACTIONS (5)
  - Abnormal behaviour [Recovered/Resolved]
  - Hypersomnia [Recovered/Resolved]
  - Anxiety [Recovered/Resolved]
  - Lethargy [Unknown]
  - Vomiting [Recovered/Resolved]

NARRATIVE: CASE EVENT DATE: 20201012
